FAERS Safety Report 6522992-7 (Version None)
Quarter: 2009Q4

REPORT INFORMATION
  Report Type: 
  Country: None (occurrence: None)
  Receive Date: 20091222
  Receipt Date: 20091208
  Transmission Date: 20100525
  Serious: Yes (Hospitalization)
  Sender: FDA-Public Use
  Company Number: 2009AL007666

PATIENT
  Age: 42 Year
  Sex: Male

DRUGS (3)
  1. SPIRONOLACTONE [Suspect]
     Indication: FEMINISATION ACQUIRED
     Dosage: 200 MG; QD; PO
     Route: 048
  2. ESTRADIOL [Concomitant]
  3. ETHINYL ESTRADIOL [Concomitant]

REACTIONS (6)
  - DEEP VEIN THROMBOSIS [None]
  - DIZZINESS [None]
  - GYNAECOMASTIA [None]
  - HEART RATE INCREASED [None]
  - PULMONARY EMBOLISM [None]
  - SELF-MEDICATION [None]
